FAERS Safety Report 5118879-7 (Version None)
Quarter: 2006Q3

REPORT INFORMATION
  Report Type: 
  Country: None (occurrence: None)
  Receive Date: 20060925
  Receipt Date: 20060919
  Transmission Date: 20061208
  Serious: Yes (Hospitalization, Other)
  Sender: FDA-Public Use
  Company Number: HQWYE886119SEP06

PATIENT
  Sex: 0
  Weight: 87 kg

DRUGS (1)
  1. BENEFIX [Suspect]
     Indication: FACTOR VIII DEFICIENCY

REACTIONS (1)
  - LIVER TRANSPLANT [None]
